FAERS Safety Report 5355415-4 (Version None)
Quarter: 2007Q2

REPORT INFORMATION
  Report Type: 
  Country: None (occurrence: None)
  Receive Date: 20070530
  Receipt Date: 20070117
  Transmission Date: 20071010
  Serious: Yes (Hospitalization, Other)
  Sender: FDA-Public Use
  Company Number: US200609003502

PATIENT
  Age: 23 Year
  Sex: Male
  Weight: 63.5 kg

DRUGS (1)
  1. ZYPREXA [Suspect]
     Dates: start: 20051001, end: 20051001

REACTIONS (2)
  - HEPATOCELLULAR DAMAGE [None]
  - PANCREATITIS [None]
